FAERS Safety Report 13405037 (Version 2)
Quarter: 2017Q2

REPORT INFORMATION
  Report Type: Spontaneous
  Country: PT (occurrence: PT)
  Receive Date: 20170405
  Receipt Date: 20170516
  Transmission Date: 20170830
  Serious: Yes (Death, Hospitalization, Other)
  Sender: FDA-Public Use
  Company Number: PT-009507513-1704PRT000907

PATIENT
  Age: 56 Year
  Sex: Female

DRUGS (2)
  1. KEYTRUDA [Suspect]
     Active Substance: PEMBROLIZUMAB
     Dosage: UNK, CYCLE 2
  2. KEYTRUDA [Suspect]
     Active Substance: PEMBROLIZUMAB
     Indication: LUNG NEOPLASM MALIGNANT
     Dosage: UNK, CYCLE 1
     Dates: start: 20170130

REACTIONS (3)
  - Malignant neoplasm progression [Fatal]
  - Pneumonitis [Unknown]
  - Spinal fracture [Unknown]

NARRATIVE: CASE EVENT DATE: 2017
